FAERS Safety Report 9312113 (Version 2)
Quarter: 2013Q3

REPORT INFORMATION
  Report Type: Spontaneous
  Country: CA (occurrence: CA)
  Receive Date: 20130528
  Receipt Date: 20130812
  Transmission Date: 20140515
  Serious: Yes (Other)
  Sender: FDA-Public Use
  Company Number: CA-OTSUKA-US-2013-10992

PATIENT
  Sex: 0

DRUGS (13)
  1. BUSULFEX [Suspect]
     Indication: LYMPHOMA
     Dosage: 12.0 MG/KG, UNK
     Route: 042
  2. RITUXAN [Suspect]
     Indication: LYMPHOMA
     Route: 042
  3. PREDNISONE [Suspect]
     Indication: LYMPHOMA
  4. FLUDARA [Suspect]
     Indication: LYMPHOMA
     Dosage: 250.0 MG/M2, UNK
     Route: 042
  5. ZEVALIN [Suspect]
     Indication: LYMPHOMA
  6. CARBOPLATIN [Concomitant]
     Indication: PRODUCT USED FOR UNKNOWN INDICATION
     Route: 042
  7. CISPLATIN [Concomitant]
     Indication: PRODUCT USED FOR UNKNOWN INDICATION
     Route: 042
  8. CYCLOPHOSPHAMIDE [Concomitant]
     Indication: PRODUCT USED FOR UNKNOWN INDICATION
  9. DOXORUBICIN HYDROCHLORIDE [Concomitant]
     Indication: PRODUCT USED FOR UNKNOWN INDICATION
  10. ETOPOSIDE, USP [Concomitant]
     Indication: PRODUCT USED FOR UNKNOWN INDICATION
  11. GRANULOCYTE COLONY STIMULATING FACTOR (G-CSF) [Concomitant]
     Indication: PRODUCT USED FOR UNKNOWN INDICATION
  12. IFOSFAMIDE [Concomitant]
     Indication: PRODUCT USED FOR UNKNOWN INDICATION
     Route: 042
  13. VINCRISTINE SULFATE, USP [Concomitant]
     Indication: PRODUCT USED FOR UNKNOWN INDICATION

REACTIONS (1)
  - Progressive multifocal leukoencephalopathy [Unknown]
